FAERS Safety Report 26141357 (Version 1)
Quarter: 2025Q4

REPORT INFORMATION
  Report Type: Spontaneous
  Country: US (occurrence: None)
  Receive Date: 20251210
  Receipt Date: 20251210
  Transmission Date: 20260118
  Serious: Yes (Hospitalization)
  Sender: FDA-CTU
  Company Number: None

PATIENT
  Age: 69 Year
  Sex: Female

DRUGS (18)
  1. AUSTEDO [Suspect]
     Active Substance: DEUTETRABENAZINE
     Indication: Tardive dyskinesia
     Dosage: FREQUENCY : TWICE A DAY;
     Route: 048
     Dates: start: 20250212
  2. ONDANSETRON [Concomitant]
     Active Substance: ONDANSETRON
  3. PROMETHAZINE [Concomitant]
     Active Substance: PROMETHAZINE HYDROCHLORIDE
  4. MIDODRINE [Concomitant]
     Active Substance: MIDODRINE
  5. NURTEC ODT [Concomitant]
     Active Substance: RIMEGEPANT SULFATE
  6. UBRELVY [Concomitant]
     Active Substance: UBROGEPANT
  7. TOPIRAMATE [Concomitant]
     Active Substance: TOPIRAMATE
  8. NALTREXONE [Concomitant]
     Active Substance: NALTREXONE
  9. PHENTERMINE [Concomitant]
     Active Substance: PHENTERMINE
  10. METFORMIN [Concomitant]
     Active Substance: METFORMIN HYDROCHLORIDE
  11. TRAZODONE [Concomitant]
     Active Substance: TRAZODONE HYDROCHLORIDE
  12. FLUOXETINE [Concomitant]
     Active Substance: FLUOXETINE HYDROCHLORIDE
  13. BUPROPION [Concomitant]
     Active Substance: BUPROPION
  14. PANTOPRAZOLE [Concomitant]
     Active Substance: PANTOPRAZOLE
  15. CLOPIDOGREL [Concomitant]
     Active Substance: CLOPIDOGREL BISULFATE
  16. ASPIRIN [Concomitant]
     Active Substance: ASPIRIN
  17. POTASSIUM CIT [Concomitant]
  18. ATORVASTATIN [Concomitant]
     Active Substance: ATORVASTATIN

REACTIONS (3)
  - Hypotension [None]
  - Loss of personal independence in daily activities [None]
  - Drug ineffective [None]

NARRATIVE: CASE EVENT DATE: 20250801
